FAERS Safety Report 6266766-3 (Version None)
Quarter: 2009Q3

REPORT INFORMATION
  Report Type: 
  Country: None (occurrence: None)
  Receive Date: 20090710
  Receipt Date: 20090710
  Transmission Date: 20100115
  Serious: Yes (Hospitalization)
  Sender: FDA-Public Use
  Company Number: None

PATIENT
  Age: 56 Year
  Sex: Male
  Weight: 93.8946 kg

DRUGS (10)
  1. BEVACIZUMAB [Suspect]
     Indication: OESOPHAGEAL ADENOCARCINOMA
     Dosage: 7.5 MG/KG D1/22DAYCYCLE
     Dates: start: 20090520, end: 20090701
  2. OXALIPLATIN [Suspect]
     Indication: OESOPHAGEAL ADENOCARCINOMA
     Dosage: 75MG/M2
     Dates: start: 20090520, end: 20090701
  3. DOCETAXEL [Suspect]
     Indication: OESOPHAGEAL ADENOCARCINOMA
     Dosage: 55MG/M2 D1
     Dates: start: 20090520, end: 20090701
  4. XANAX [Concomitant]
  5. REGLAN [Concomitant]
  6. METOPROLOL SUCCINATE [Concomitant]
  7. REMERON [Concomitant]
  8. DIOVAN [Concomitant]
  9. COMPAZINE [Concomitant]
  10. CREON (PANCRELIPASE) [Concomitant]

REACTIONS (3)
  - DYSURIA [None]
  - LARGE INTESTINE PERFORATION [None]
  - PYREXIA [None]
